FAERS Safety Report 8044589-2 (Version None)
Quarter: 2012Q1

REPORT INFORMATION
  Report Type: 
  Country: None (occurrence: None)
  Receive Date: 20120113
  Receipt Date: 20120113
  Transmission Date: 20120608
  Serious: Yes (Life-Threatening, Hospitalization)
  Sender: FDA-Public Use
  Company Number: None

PATIENT
  Age: 51 Year
  Sex: Female
  Weight: 97.522 kg

DRUGS (1)
  1. BACTRIM [Suspect]

REACTIONS (5)
  - DYSURIA [None]
  - MYOPATHY [None]
  - MENINGITIS ASEPTIC [None]
  - HYPONATRAEMIA [None]
  - HYPERSENSITIVITY [None]
